FAERS Safety Report 9737533 (Version 2)
Quarter: 2014Q1

REPORT INFORMATION
  Report Type: Spontaneous
  Country: GB (occurrence: GB)
  Receive Date: 20131207
  Receipt Date: 20140319
  Transmission Date: 20141002
  Serious: Yes (Other)
  Sender: FDA-Public Use
  Company Number: GB-ACCORD-020572

PATIENT
  Age: 77 Year
  Sex: Male

DRUGS (14)
  1. TACROLIMUS [Suspect]
     Indication: RASH
     Route: 061
     Dates: start: 20131118
  2. DICLOFENAC [Concomitant]
     Dates: start: 20130722, end: 20131112
  3. EPIPEN [Concomitant]
     Dates: start: 20130823, end: 20130920
  4. CHLORAMPHENICOL [Concomitant]
     Dates: start: 20131105, end: 20131110
  5. GABAPENTIN [Concomitant]
     Dates: start: 20131028
  6. BENDROFLUMETHIAZIDE [Concomitant]
     Dates: start: 20130722
  7. HYDROCORTISONE [Concomitant]
     Dates: start: 20131108, end: 20131109
  8. TEMAZEPAM [Concomitant]
     Dates: start: 20130722
  9. COSOPT [Concomitant]
     Dates: start: 20130722
  10. PERINDOPRIL [Concomitant]
     Dates: start: 20130722, end: 20131022
  11. AMITRIPTYLINE [Concomitant]
     Dates: start: 20130722, end: 20131025
  12. SIMVASTATIN [Concomitant]
     Dates: start: 20130823
  13. CLARITHROMYCIN/CLARITHROMYCIN LACTOBIONATE [Concomitant]
     Dates: start: 20131105, end: 20131112
  14. LORATADINE [Concomitant]
     Dates: start: 20131115

REACTIONS (3)
  - Condition aggravated [Unknown]
  - Skin irritation [Unknown]
  - Dermatitis allergic [Unknown]
